FAERS Safety Report 4307071-1 (Version None)
Quarter: 2004Q1

REPORT INFORMATION
  Report Type: 
  Country: None (occurrence: None)
  Receive Date: 20040225
  Receipt Date: 20040210
  Transmission Date: 20041129
  Serious: Yes (Other)
  Sender: FDA-Public Use
  Company Number: USA031151629

PATIENT
  Age: 82 Year
  Sex: Female
  Weight: 71 kg

DRUGS (9)
  1. FORTEO [Suspect]
     Indication: OSTEOPOROSIS
     Dosage: 20 UG/DAY
     Dates: start: 20030404
  2. SUPARTZ (HYALURONATE SODIUM) [Concomitant]
  3. LEXAPRO [Concomitant]
  4. SINGULAIR (MONTELUKAST) [Concomitant]
  5. PREVACID [Concomitant]
  6. DARVOCET-N 100 [Concomitant]
  7. VIOXX [Concomitant]
  8. CARDIZEM CD [Concomitant]
  9. SYNTHROID [Concomitant]

REACTIONS (6)
  - FALL [None]
  - FRACTURED COCCYX [None]
  - GAIT DISTURBANCE [None]
  - NAIL DISORDER [None]
  - PHARMACEUTICAL PRODUCT COMPLAINT [None]
  - UNEXPECTED THERAPEUTIC DRUG EFFECT [None]
